FAERS Safety Report 14717962 (Version 2)
Quarter: 2018Q3

REPORT INFORMATION
  Report Type: Spontaneous
  Country: US (occurrence: US)
  Receive Date: 20180404
  Receipt Date: 20180725
  Transmission Date: 20181010
  Serious: No
  Sender: FDA-Public Use
  Company Number: US-SA-2018SA057564

PATIENT
  Age: 41 Year
  Sex: Female

DRUGS (1)
  1. DUPIXENT [Suspect]
     Active Substance: DUPILUMAB
     Dosage: 300 MG,QOW
     Route: 058
     Dates: start: 20180120

REACTIONS (9)
  - Oral mucosal erythema [Unknown]
  - Swelling [Recovered/Resolved]
  - Rebound atopic dermatitis [Unknown]
  - Ocular hyperaemia [Unknown]
  - Dry skin [Unknown]
  - Dry eye [Unknown]
  - Erythema [Unknown]
  - Dry mouth [Unknown]
  - Flushing [Recovered/Resolved]

NARRATIVE: CASE EVENT DATE: 20180201
